FAERS Safety Report 8263492-6 (Version None)
Quarter: 2012Q1

REPORT INFORMATION
  Report Type: 
  Country: None (occurrence: None)
  Receive Date: 20120327
  Receipt Date: 20090107
  Transmission Date: 20120608
  Serious: Yes (Hospitalization)
  Sender: FDA-Public Use
  Company Number: PHEH2009US00501

PATIENT
  Age: 61 Year
  Sex: Male

DRUGS (7)
  1. VINCRISTINE [Concomitant]
  2. CYTARABINE [Concomitant]
  3. GLEEVEC [Suspect]
     Indication: ACUTE LYMPHOCYTIC LEUKAEMIA
     Dates: end: 20081218
  4. MENSA [Concomitant]
  5. PREDNISONE TAB [Concomitant]
  6. CYTOXAN [Concomitant]
  7. DOXORUBICIN HCL [Concomitant]

REACTIONS (4)
  - PANCREATITIS [None]
  - ABDOMINAL DISTENSION [None]
  - PSEUDOCYST [None]
  - ABDOMINAL PAIN [None]
